FAERS Safety Report 13641650 (Version 1)
Quarter: 2017Q2

REPORT INFORMATION
  Report Type: Spontaneous
  Country: US (occurrence: US)
  Receive Date: 20170611
  Receipt Date: 20170611
  Transmission Date: 20170830
  Serious: No
  Sender: FDA-Public Use
  Company Number: None

PATIENT
  Age: 40 Year
  Sex: Female
  Weight: 68.4 kg

DRUGS (43)
  1. LIDOCAINE. [Concomitant]
     Active Substance: LIDOCAINE
  2. FLUVOXAMINE [Concomitant]
     Active Substance: FLUVOXAMINE
  3. SINGULAIR [Concomitant]
     Active Substance: MONTELUKAST SODIUM
  4. ROBAXIN [Concomitant]
     Active Substance: METHOCARBAMOL
  5. XANAX XR [Concomitant]
     Active Substance: ALPRAZOLAM
  6. ADDERALL XR [Concomitant]
     Active Substance: AMPHETAMINE ASPARTATE\AMPHETAMINE SULFATE\DEXTROAMPHETAMINE SACCHARATE\DEXTROAMPHETAMINE SULFATE
  7. MAGNESIUM [Concomitant]
     Active Substance: MAGNESIUM
  8. VITAMIN B12 [Concomitant]
     Active Substance: CYANOCOBALAMIN
  9. MAGNESIUM CITRATE. [Concomitant]
     Active Substance: MAGNESIUM CITRATE
  10. GABITRIL [Concomitant]
     Active Substance: TIAGABINE HYDROCHLORIDE
  11. OXYCODONE [Concomitant]
     Active Substance: OXYCODONE
  12. ADHESIVES [Concomitant]
  13. MEXILITINE [Concomitant]
  14. SYMBICORT [Concomitant]
     Active Substance: BUDESONIDE\FORMOTEROL FUMARATE DIHYDRATE
  15. XANAX IR [Concomitant]
  16. EPIPEN [Concomitant]
     Active Substance: EPINEPHRINE
  17. MOVANTIC [Concomitant]
  18. ACYCLOVIR. [Concomitant]
     Active Substance: ACYCLOVIR
  19. HYDROXYZINE [Concomitant]
     Active Substance: HYDROXYZINE HYDROCHLORIDE
  20. VITAMIN D3 [Concomitant]
     Active Substance: CHOLECALCIFEROL
  21. MAXALT-MLT [Concomitant]
     Active Substance: RIZATRIPTAN BENZOATE
  22. CIPRO [Concomitant]
     Active Substance: CIPROFLOXACIN HYDROCHLORIDE
  23. POTASSIUM XR [Concomitant]
  24. STOOL SOFTENER (DOCUSATE) [Concomitant]
     Active Substance: DOCUSATE
  25. GUAIFENESIN. [Concomitant]
     Active Substance: GUAIFENESIN
  26. ZOFRAN [Concomitant]
     Active Substance: ONDANSETRON HYDROCHLORIDE
  27. MICROGESTIN [Concomitant]
     Active Substance: ETHINYL ESTRADIOL\NORETHINDRONE ACETATE
  28. KETOROLAC [Concomitant]
     Active Substance: KETOROLAC\KETOROLAC TROMETHAMINE
  29. ADDERALL [Concomitant]
     Active Substance: AMPHETAMINE ASPARTATE\AMPHETAMINE SULFATE\DEXTROAMPHETAMINE SACCHARATE\DEXTROAMPHETAMINE SULFATE
  30. SULFA PCN (PENICILLIN) [Concomitant]
  31. NEURONTIN [Concomitant]
     Active Substance: GABAPENTIN
  32. FENTANYL. [Concomitant]
     Active Substance: FENTANYL
  33. PREDNISONE. [Concomitant]
     Active Substance: PREDNISONE
  34. FLONASE [Concomitant]
     Active Substance: FLUTICASONE PROPIONATE
  35. CALCIUM CITRATE W/ VIT D3 [Concomitant]
  36. LEVAQUIN [Concomitant]
     Active Substance: LEVOFLOXACIN
  37. CUVITRU [Suspect]
     Active Substance: HUMAN IMMUNOGLOBULIN G
     Indication: PRIMARY IMMUNODEFICIENCY SYNDROME
     Dosage: ?          QUANTITY:14 GRAMS;OTHER FREQUENCY:14 GRAMS WEEKLY;?
     Route: 058
  38. RECLAST [Concomitant]
     Active Substance: ZOLEDRONIC ACID
  39. WELLBUTRIN XL [Concomitant]
     Active Substance: BUPROPION HYDROCHLORIDE
  40. LASIX [Concomitant]
     Active Substance: FUROSEMIDE
  41. MELATONIN [Concomitant]
     Active Substance: MELATONIN
  42. EMLA [Concomitant]
     Active Substance: LIDOCAINE\PRILOCAINE
  43. LATEX [Concomitant]
     Active Substance: NATURAL LATEX RUBBER

REACTIONS (4)
  - Infusion site swelling [None]
  - Neck pain [None]
  - Headache [None]
  - Infusion site erythema [None]

NARRATIVE: CASE EVENT DATE: 20170609
